FAERS Safety Report 16095466 (Version 1)
Quarter: 2019Q1

REPORT INFORMATION
  Report Type: Spontaneous
  Country: CH (occurrence: CH)
  Receive Date: 20190320
  Receipt Date: 20190320
  Transmission Date: 20190418
  Serious: Yes (Hospitalization, Congenital Anomaly, Other)
  Sender: FDA-Public Use
  Company Number: PHHY2019CH055095

PATIENT
  Age: 36 Year
  Sex: Female

DRUGS (3)
  1. SIRDALUD [Suspect]
     Active Substance: TIZANIDINE
     Indication: PRODUCT USED FOR UNKNOWN INDICATION
     Dosage: 4 MG, UNK (IN TOTAL)
     Route: 048
     Dates: start: 20180324, end: 20180324
  2. SIRDALUD [Suspect]
     Active Substance: TIZANIDINE
     Dosage: 2 MG, UNK
     Route: 048
     Dates: start: 20180325, end: 20180326
  3. VOLTAREN [Suspect]
     Active Substance: DICLOFENAC SODIUM
     Indication: PRODUCT USED FOR UNKNOWN INDICATION
     Dosage: 75 MG, 1X/DAY
     Route: 048
     Dates: start: 20180324, end: 20180331

REACTIONS (3)
  - Trisomy 21 [Recovered/Resolved]
  - Exposure during pregnancy [Recovered/Resolved]
  - Abortion induced [Recovered/Resolved]

NARRATIVE: CASE EVENT DATE: 20180310
